FAERS Safety Report 14281465 (Version 3)
Quarter: 2018Q2

REPORT INFORMATION
  Report Type: Spontaneous
  Country: DE (occurrence: DE)
  Receive Date: 20171213
  Receipt Date: 20180504
  Transmission Date: 20180711
  Serious: Yes (Other)
  Sender: FDA-Public Use
  Company Number: DE-MYLANLABS-2017M1077181

PATIENT
  Sex: Female

DRUGS (4)
  1. ZOELY [Suspect]
     Active Substance: ESTRADIOL\NOMEGESTROL ACETATE
     Indication: CONTRACEPTION
     Dosage: 1 DOSAGE FORMS DAILY ONE DF CONTAINS 2.5 MG NOMEGESTREL AND 1.5MG ESTRADIOL
     Route: 048
     Dates: start: 201303
  2. ESTRADIOL. [Concomitant]
     Active Substance: ESTRADIOL
     Indication: PRODUCT USED FOR UNKNOWN INDICATION
     Dosage: UNK
  3. VALDOXAN [Suspect]
     Active Substance: AGOMELATINE
     Indication: DEPRESSION
     Dosage: 25 MG, QD
     Route: 048
     Dates: start: 201705
  4. ESCITALOPRAM [Suspect]
     Active Substance: ESCITALOPRAM OXALATE
     Indication: DEPRESSION
     Dosage: 20 MG, QD
     Dates: start: 201705

REACTIONS (5)
  - Amenorrhoea [Unknown]
  - Menorrhagia [Unknown]
  - Hypomenorrhoea [Unknown]
  - Dysmenorrhoea [Unknown]
  - Depression [Unknown]

NARRATIVE: CASE EVENT DATE: 2017
